FAERS Safety Report 4616337-7 (Version None)
Quarter: 2005Q1

REPORT INFORMATION
  Report Type: 
  Country: None (occurrence: None)
  Receive Date: 20050321
  Receipt Date: 20050310
  Transmission Date: 20050727
  Serious: Yes (Life-Threatening, Hospitalization, Other)
  Sender: FDA-Public Use
  Company Number: HQWYE102525MAY04

PATIENT
  Age: 66 Year
  Sex: Female

DRUGS (13)
  1. RAPAMUNE [Suspect]
     Indication: PROPHYLAXIS AGAINST TRANSPLANT REJECTION
     Dosage: 6 MG 1X PER 1 DAY, ORAL
     Route: 048
     Dates: start: 20040209, end: 20040513
  2. PREDNISONE [Concomitant]
  3. PROGRAF (TICROLIMUS) [Concomitant]
  4. BACTRIM DS [Concomitant]
  5. BUMEX [Concomitant]
  6. COLACE (DOCUSATE SODIUM) [Concomitant]
  7. FOLIC ACID [Concomitant]
  8. INSULIN [Concomitant]
  9. LOPRESSOR [Concomitant]
  10. NIFEDIPINE - SLOW RELEASE ^STADA^ (NIFEDIPINE) [Concomitant]
  11. OS-CAL + D (CALICUM CARBONATE/COLECALCIFEROL) [Concomitant]
  12. VALCYTE [Concomitant]
  13. ZANTAC [Concomitant]

REACTIONS (1)
  - PNEUMONITIS [None]
